FAERS Safety Report 26178533 (Version 1)
Quarter: 2025Q4

REPORT INFORMATION
  Report Type: Other
  Country: GB (occurrence: GB)
  Receive Date: 20251219
  Receipt Date: 20251219
  Transmission Date: 20260118
  Serious: Yes (Hospitalization, Other)
  Sender: MACLEODS
  Company Number: None

PATIENT

DRUGS (12)
  1. CLOPIDOGREL [Suspect]
     Active Substance: CLOPIDOGREL BISULFATE
     Indication: Product used for unknown indication
     Dosage: CLOPIDOGREL 75 MG TABLETS ONE TO BE TAKEN DAILY
     Route: 065
  2. AMOXICILLIN\CLAVULANATE POTASSIUM [Suspect]
     Active Substance: AMOXICILLIN\CLAVULANATE POTASSIUM
     Indication: Product used for unknown indication
     Dosage: 1000MG/200MG INJECTION
     Route: 065
     Dates: start: 20250915
  3. FOLIC ACID [Concomitant]
     Active Substance: FOLIC ACID
     Indication: Product used for unknown indication
     Dosage: FOLIC ACID 5 MG TABLETS ONE TO BE TAKEN EACH DAY IN THE MORNING
     Route: 065
  4. Aymes Actagain Juce liquid [Concomitant]
     Indication: Product used for unknown indication
     Route: 065
  5. POLYETHYLENE GLYCOLS [Concomitant]
     Active Substance: POLYETHYLENE GLYCOLS
     Indication: Product used for unknown indication
     Dosage: ONE SACHET TO BE TAKEN TWICE A DAY (MORNING AND NIGHTTIME) AS DIRECTED
     Route: 048
  6. ACETAMINOPHEN [Concomitant]
     Active Substance: ACETAMINOPHEN
     Indication: Product used for unknown indication
     Dosage: PARACETAMOL 500 MG TABLETS TWO TO BE TAKEN EVERY 4-6 HOURS UP FOUR TIMES A DAY AS DIRECTED
     Route: 065
  7. DERMOL [Concomitant]
     Active Substance: BENZALKONIUM CHLORIDE\CHLORHEXIDINE HYDROCHLORIDE\ISOPROPYL MYRISTATE\PARAFFIN
     Indication: Product used for unknown indication
     Dosage: (DERMAL LABORATORIES LTD). DERMOL 500 LOTION APPLY FOUR TIMES DAILY
     Route: 065
  8. NITROGLYCERIN [Concomitant]
     Active Substance: NITROGLYCERIN
     Indication: Chest pain
     Dosage: (A A H PHARMACEUTICALS LTD) SUBLINGUAL SPRAY SPRAY ONE DOSE UNDER TONGUE
     Route: 060
  9. BISOPROLOL [Concomitant]
     Active Substance: BISOPROLOL
     Indication: Product used for unknown indication
     Dosage: 1.25 MG TABLETS ONE TO BE TAKEN EACH DAY
     Route: 065
  10. CHOLECALCIFEROL [Concomitant]
     Active Substance: CHOLECALCIFEROL
     Indication: Product used for unknown indication
     Dosage: COLECALCIFEROL 800 UNIT CAPSULES ONE TO BE TAKEN DAILY
     Route: 065
  11. SENNA [Concomitant]
     Active Substance: SENNOSIDES
     Indication: Product used for unknown indication
     Dosage: SENNA 7.5 MG TABLETS TWO TO BE TAKEN AT NIGHT AS DIRECTED(A A H PHARMACEUTICALS LTD)
     Route: 065
  12. LANSOPRAZOLE [Concomitant]
     Active Substance: LANSOPRAZOLE
     Indication: Product used for unknown indication
     Dosage: 15 MG GASTRO-RESISTANT CAPSULES ONE TO BE TAKEN EACH MORNING
     Route: 065

REACTIONS (1)
  - Thrombocytopenia [Unknown]
